FAERS Safety Report 20033196 (Version 1)
Quarter: 2021Q4

REPORT INFORMATION
  Report Type: Report from Study
  Country: US (occurrence: US)
  Receive Date: 20211104
  Receipt Date: 20211104
  Transmission Date: 20220303
  Serious: Yes (Death, Other)
  Sender: FDA-Public Use
  Company Number: US-GILEAD-2021-0554417

PATIENT
  Age: 73 Year
  Sex: Female

DRUGS (16)
  1. AZTREONAM LYSINE [Suspect]
     Active Substance: AZTREONAM LYSINE
     Indication: Bronchiectasis
     Dosage: 75 MG, TID 28 DAYS ON AND 28 DAYS OFF
     Route: 055
     Dates: start: 20200227
  2. OMEPRAZOLE [Concomitant]
     Active Substance: OMEPRAZOLE
  3. ZYRTEC [Concomitant]
     Active Substance: CETIRIZINE HYDROCHLORIDE
  4. PROVENTIL HFA [SALBUTAMOL] [Concomitant]
  5. METOPROLOL SUCCINATE [Concomitant]
     Active Substance: METOPROLOL SUCCINATE
  6. IPRATROPIUM BROMIDE AND ALBUTEROL SULFATE [Concomitant]
     Active Substance: ALBUTEROL SULFATE\IPRATROPIUM BROMIDE
  7. SPIRIVA [Concomitant]
     Active Substance: TIOTROPIUM BROMIDE MONOHYDRATE
  8. SIMVASTATIN [Concomitant]
     Active Substance: SIMVASTATIN
  9. ALLOPURINOL [Concomitant]
     Active Substance: ALLOPURINOL
  10. LASIX [Concomitant]
     Active Substance: FUROSEMIDE
  11. TYLENOL [Concomitant]
     Active Substance: ACETAMINOPHEN
  12. POTASSIUM CHLORIDE [Concomitant]
     Active Substance: POTASSIUM CHLORIDE
  13. DEXAMETHASONE [Concomitant]
     Active Substance: DEXAMETHASONE
  14. REVLIMID [Concomitant]
     Active Substance: LENALIDOMIDE
  15. ACYCLOVIR [Concomitant]
     Active Substance: ACYCLOVIR
  16. IMMUNE SUPPORT [Concomitant]

REACTIONS (2)
  - Death [Fatal]
  - Off label use [Recovered/Resolved]

NARRATIVE: CASE EVENT DATE: 20200227
